FAERS Safety Report 7750956-4 (Version None)
Quarter: 2011Q3

REPORT INFORMATION
  Report Type: 
  Country: None (occurrence: None)
  Receive Date: 20110914
  Receipt Date: 20110830
  Transmission Date: 20111222
  Serious: Yes (Hospitalization, Other)
  Sender: FDA-Public Use
  Company Number: JP-UCBSA-023788

PATIENT
  Sex: Female

DRUGS (23)
  1. FAMOTIDINE [Concomitant]
     Dates: start: 20090101
  2. KETOPROFEN [Concomitant]
     Dosage: ADEQUATE DOSE
     Dates: start: 20101110
  3. SALMETEROL XINAFOATE FLUTICASONE PROPIONATE [Concomitant]
     Dosage: DAILY DOSE: 2 PUFF
     Dates: start: 20110120
  4. CELECOXIB [Concomitant]
     Dates: start: 20090518, end: 20101207
  5. BUCILLAMINE [Concomitant]
     Dates: start: 20101209, end: 20110302
  6. TULOBUTEROL [Concomitant]
     Dosage: DAILY DOSE: 1 PATCH PER USE
     Dates: start: 20101129, end: 20101207
  7. CERTOLIZUMAB PEGOL [Suspect]
     Route: 058
     Dates: start: 20110105
  8. CELECOXIB [Concomitant]
     Dates: start: 20101209, end: 20110816
  9. DICLOFENAC SODIUM [Concomitant]
     Dosage: AS NEEDED
     Dates: start: 20100707, end: 20101027
  10. AMLODIPINE BESYLATE [Concomitant]
     Dates: start: 20101110, end: 20110330
  11. MONTELUKAST SODIUM [Concomitant]
     Indication: NASOPHARYNGITIS
     Dates: start: 20101129, end: 20101205
  12. CERTOLIZUMAB PEGOL [Suspect]
     Indication: RHEUMATOID ARTHRITIS
     Dosage: RA0006 AT WEEK 0, 2 AND 4
     Route: 058
     Dates: start: 20090618, end: 20090101
  13. WHITE PETROLATUM [Concomitant]
     Dosage: ADEQUATE DOSE
     Dates: start: 20091116
  14. CERTOLIZUMAB PEGOL [Suspect]
     Dosage: RA0006:FROM WEEK 6 TO 22
     Route: 058
     Dates: start: 20090101, end: 20090101
  15. CERTOLIZUMAB PEGOL [Suspect]
     Route: 058
     Dates: start: 20091013, end: 20101125
  16. BUCILLAMINE [Concomitant]
     Dates: start: 20090518, end: 20101207
  17. CARBOCISTEINE [Concomitant]
     Indication: NASOPHARYNGITIS
     Dates: start: 20101129, end: 20101205
  18. CELECOXIB [Concomitant]
     Dates: start: 20110817
  19. AMLODIPINE BESYLATE [Concomitant]
     Dates: start: 20110331
  20. TULOBUTEROL [Concomitant]
     Dosage: DAILY DOSE: ADEQUATE DOSE
     Dates: start: 20110121, end: 20110125
  21. SALMETEROL XINAFOATE FLUTICASONE PROPIONATE [Concomitant]
     Dosage: 1 INHALATION PER USE, 2 PUFF
     Dates: start: 20101129, end: 20110119
  22. CLOBETASOL PROPIONATE [Concomitant]
     Dosage: ADEQUATE DOSE
     Dates: start: 20100402
  23. HEPARIN [Concomitant]
     Dosage: ADEQUATE DOSE
     Dates: start: 20091116

REACTIONS (1)
  - RHEUMATOID ARTHRITIS [None]
